FAERS Safety Report 13453239 (Version 1)
Quarter: 2017Q2

REPORT INFORMATION
  Report Type: Spontaneous
  Country: US (occurrence: US)
  Receive Date: 20170418
  Receipt Date: 20170418
  Transmission Date: 20170830
  Serious: No
  Sender: FDA-Public Use
  Company Number: US-ALLERGAN-1658490US

PATIENT
  Sex: Female

DRUGS (1)
  1. LATISSE [Suspect]
     Active Substance: BIMATOPROST
     Indication: GROWTH OF EYELASHES
     Dosage: 1 GTT ON APPLICATOR PER EYELID 3-4 TIMES PER WEEK
     Route: 061
     Dates: start: 2013

REACTIONS (2)
  - Inappropriate schedule of drug administration [Unknown]
  - Therapeutic response decreased [Unknown]
